FAERS Safety Report 4826946-8 (Version None)
Quarter: 2005Q4

REPORT INFORMATION
  Report Type: 
  Country: None (occurrence: None)
  Receive Date: 20051114
  Receipt Date: 20051013
  Transmission Date: 20060501
  Serious: Yes (Other)
  Sender: FDA-Public Use
  Company Number: 200512985JP

PATIENT
  Age: 66 Year
  Sex: Male
  Weight: 49 kg

DRUGS (10)
  1. TAXOTERE [Suspect]
     Indication: LUNG NEOPLASM MALIGNANT
     Dosage: DOSE: 40MG/BODY
     Route: 041
     Dates: start: 20050620, end: 20050928
  2. CARBOPLATIN [Concomitant]
     Dosage: DOSE: 350MG/BODY
     Dates: start: 20050620, end: 20050928
  3. CORTICOSTEROIDS [Concomitant]
     Dates: start: 20050620, end: 20050928
  4. WARFARIN [Concomitant]
     Indication: THROMBOSIS
     Dosage: DOSE: 1.5 TO 2
     Route: 048
     Dates: start: 20050315
  5. TAGAMET [Concomitant]
     Indication: GASTRIC ULCER
     Route: 048
     Dates: start: 20050309
  6. LOXONIN [Concomitant]
     Indication: HERPES ZOSTER
     Route: 048
  7. LOXONIN [Concomitant]
     Indication: ANALGESIC EFFECT
     Route: 048
  8. CYANOCOBALAMIN [Concomitant]
     Indication: HERPES ZOSTER
     Route: 048
  9. CYANOCOBALAMIN [Concomitant]
     Indication: ANALGESIC EFFECT
     Route: 048
  10. RADIOTHERAPY [Concomitant]
     Dates: start: 20050419, end: 20050606

REACTIONS (6)
  - ATRIAL FIBRILLATION [None]
  - CARDIAC FAILURE CONGESTIVE [None]
  - PERICARDIAL EFFUSION [None]
  - PERICARDITIS [None]
  - PLEURAL EFFUSION [None]
  - PLEURISY [None]
